FAERS Safety Report 9597044 (Version 3)
Quarter: 2013Q4

REPORT INFORMATION
  Report Type: Spontaneous
  Country: US (occurrence: US)
  Receive Date: 20131004
  Receipt Date: 20131126
  Transmission Date: 20140711
  Serious: Yes (Other)
  Sender: FDA-Public Use
  Company Number: US-TARO-2013P1019689

PATIENT
  Age: 65 Year
  Sex: Female
  Weight: 94.35 kg

DRUGS (7)
  1. WARFARIN SODIUM TABLETS USP 2MG [Suspect]
     Indication: EMBOLISM
     Route: 048
  2. WARFARIN SODIUM TABLETS USP 2MG [Suspect]
     Indication: EMBOLISM
     Route: 048
  3. ENALAPRIL [Concomitant]
  4. PAXIL [Concomitant]
  5. BUSPIRONE [Concomitant]
  6. GABAPENTIN [Concomitant]
  7. GABAPENTIN [Concomitant]

REACTIONS (5)
  - International normalised ratio increased [Recovered/Resolved]
  - Increased tendency to bruise [Not Recovered/Not Resolved]
  - Eye haemorrhage [Not Recovered/Not Resolved]
  - Product quality issue [Unknown]
  - Syncope [Unknown]
